FAERS Safety Report 4851909-6 (Version None)
Quarter: 2005Q4

REPORT INFORMATION
  Report Type: 
  Country: None (occurrence: None)
  Receive Date: 20051213
  Receipt Date: 20051202
  Transmission Date: 20060501
  Serious: Yes (Hospitalization)
  Sender: FDA-Public Use
  Company Number: US-ABBOTT-05P-163-0318473-00

PATIENT
  Sex: Female
  Weight: 43.13 kg

DRUGS (6)
  1. SYNTHROID [Suspect]
     Indication: HYPOTHYROIDISM
     Route: 048
     Dates: start: 19910101, end: 20051101
  2. SYNTHROID [Suspect]
     Route: 048
     Dates: start: 20051201
  3. ALENDRONATE SODIUM [Concomitant]
     Indication: OSTEOPOROSIS
     Dosage: PILL
     Route: 048
     Dates: start: 20050601
  4. TOPROL-XL [Concomitant]
     Indication: HEART RATE INCREASED
     Route: 048
     Dates: start: 20050701
  5. POTASSIUM [Concomitant]
     Indication: MINERAL SUPPLEMENTATION
     Route: 048
     Dates: start: 20051101, end: 20051201
  6. ZOLPIDEM TARTRATE [Concomitant]
     Indication: SLEEP DISORDER
     Route: 048
     Dates: start: 20051101

REACTIONS (12)
  - ALOPECIA [None]
  - ANAEMIA [None]
  - ANXIETY [None]
  - BASEDOW'S DISEASE [None]
  - BLOOD CALCIUM DECREASED [None]
  - BLOOD GLUCOSE INCREASED [None]
  - BLOOD THYROID STIMULATING HORMONE DECREASED [None]
  - GOUT [None]
  - HEART RATE INCREASED [None]
  - NAUSEA [None]
  - PALPITATIONS [None]
  - VOMITING [None]
